FAERS Safety Report 24267165 (Version 1)
Quarter: 2024Q3

REPORT INFORMATION
  Report Type: Spontaneous
  Country: FR (occurrence: FR)
  Receive Date: 20240830
  Receipt Date: 20240830
  Transmission Date: 20241016
  Serious: Yes (Hospitalization)
  Sender: ABBVIE
  Company Number: FR-JNJFOC-20240865989

PATIENT
  Sex: Female

DRUGS (1)
  1. IMBRUVICA [Suspect]
     Active Substance: IBRUTINIB
     Indication: Von Willebrand^s disease
     Route: 048
     Dates: start: 2019

REACTIONS (6)
  - Peritonitis [Unknown]
  - Inflammation [Unknown]
  - Effusion [Unknown]
  - Off label use [Unknown]
  - Pyrexia [Unknown]
  - Atrial fibrillation [Unknown]

NARRATIVE: CASE EVENT DATE: 20240801
